FAERS Safety Report 10273259 (Version 1)
Quarter: 2014Q1

REPORT INFORMATION
  Report Type: Spontaneous
  Country: US (occurrence: None)
  Receive Date: 20140306
  Receipt Date: 20140306
  Transmission Date: 20141002
  Serious: Yes (Other)
  Sender: FDA-Public Use
  Company Number: 163-21880-13083695

PATIENT
  Age: 62 Year
  Sex: Male

DRUGS (3)
  1. REVLIMID (LENALIDOMIDE) (10 MILLIGRAM, CAPSULES) [Suspect]
     Indication: CHRONIC LYMPHOCYTIC LEUKAEMIA
     Route: 048
     Dates: start: 20130527, end: 20130812
  2. CIALIS (TADALAFIL) [Concomitant]
  3. ALLOPURINOL [Concomitant]

REACTIONS (1)
  - Haemolytic anaemia [None]
